FAERS Safety Report 9697256 (Version 2)
Quarter: 2013Q4

REPORT INFORMATION
  Report Type: Spontaneous
  Country: CA (occurrence: CA)
  Receive Date: 20131120
  Receipt Date: 20131203
  Transmission Date: 20140711
  Serious: Yes (Hospitalization)
  Sender: FDA-Public Use
  Company Number: CA-BRISTOL-MYERS SQUIBB COMPANY-19814284

PATIENT
  Sex: 0

DRUGS (1)
  1. ONGLYZA TABS 2.5 MG [Suspect]
     Indication: DIABETES MELLITUS

REACTIONS (1)
  - Gastrointestinal tube insertion [Unknown]
